FAERS Safety Report 8461841-7 (Version None)
Quarter: 2012Q2

REPORT INFORMATION
  Report Type: 
  Country: None (occurrence: None)
  Receive Date: 20120625
  Receipt Date: 20120615
  Transmission Date: 20120825
  Serious: Yes (Hospitalization, Other)
  Sender: FDA-Public Use
  Company Number: US-ASTELLAS-2012US003934

PATIENT
  Sex: Male
  Weight: 80 kg

DRUGS (8)
  1. ERLOTINIB HYDROCHLORIDE [Suspect]
     Indication: NON-SMALL CELL LUNG CANCER
     Dosage: 150 MG, UID/QD
     Route: 048
     Dates: start: 20111220, end: 20120318
  2. INOCYCLINE [Concomitant]
     Indication: PRODUCT USED FOR UNKNOWN INDICATION
     Dosage: UNK
     Route: 065
  3. C-MET INHIBITOR [Suspect]
     Indication: NON-SMALL CELL LUNG CANCER
     Dosage: 1400 MG, DAYS 1 AND 15, CYCLIC
     Route: 042
     Dates: start: 20111220, end: 20120305
  4. LASIX [Concomitant]
     Indication: PRODUCT USED FOR UNKNOWN INDICATION
     Dosage: UNK
     Route: 065
  5. MYCOLOG [Concomitant]
     Indication: PRODUCT USED FOR UNKNOWN INDICATION
     Dosage: UNK
     Route: 065
  6. MINOCYCLINE HCL [Concomitant]
     Indication: PRODUCT USED FOR UNKNOWN INDICATION
     Dosage: UNK
     Route: 065
  7. ALPROSTADIL W/PAPAVERINE/PHENTOLAMINE [Concomitant]
     Indication: PRODUCT USED FOR UNKNOWN INDICATION
     Dosage: UNK
     Route: 065
  8. HYDROCORTISONE [Concomitant]
     Indication: PRODUCT USED FOR UNKNOWN INDICATION
     Dosage: UNK
     Route: 065
     Dates: start: 20120320

REACTIONS (19)
  - HYPOXIA [None]
  - NIGHT SWEATS [None]
  - RASH [None]
  - ALOPECIA [None]
  - HYPERSENSITIVITY [None]
  - STOMATITIS [None]
  - ANAL INFLAMMATION [None]
  - PNEUMONIA [None]
  - PNEUMONITIS [None]
  - HAEMORRHOIDS [None]
  - PARATRACHEAL LYMPHADENOPATHY [None]
  - SKIN LESION [None]
  - INTERSTITIAL LUNG DISEASE [None]
  - RADIATION PNEUMONITIS [None]
  - LUNG NEOPLASM [None]
  - RESPIRATORY DISTRESS [None]
  - PLEURAL EFFUSION [None]
  - RESPIRATORY ALKALOSIS [None]
  - METASTASES TO BONE [None]
